FAERS Safety Report 6327014-9 (Version None)
Quarter: 2009Q3

REPORT INFORMATION
  Report Type: 
  Country: None (occurrence: None)
  Receive Date: 20090821
  Receipt Date: 20090810
  Transmission Date: 20100115
  Serious: Yes (Other)
  Sender: FDA-Public Use
  Company Number: ADR12282009

PATIENT
  Age: 58 Year
  Sex: Male

DRUGS (7)
  1. PRAVASTATIN [Suspect]
  2. SIMVASTATIN [Suspect]
  3. AMLODIPINE [Concomitant]
  4. BISOPROLOL FUMARATE [Concomitant]
  5. RAMIPRIL [Concomitant]
  6. SPIRONOLACTONE [Concomitant]
  7. WARFARIN SODIUM [Concomitant]

REACTIONS (9)
  - BACK PAIN [None]
  - BLOOD CREATININE INCREASED [None]
  - BLOOD UREA INCREASED [None]
  - C-REACTIVE PROTEIN INCREASED [None]
  - DYSPNOEA [None]
  - EOSINOPHIL COUNT INCREASED [None]
  - GUILLAIN-BARRE SYNDROME [None]
  - HAEMOGLOBIN DECREASED [None]
  - HYPONATRAEMIA [None]
